FAERS Safety Report 12280724 (Version 1)
Quarter: 2016Q2

REPORT INFORMATION
  Report Type: Spontaneous
  Country: BR (occurrence: BR)
  Receive Date: 20160419
  Receipt Date: 20160419
  Transmission Date: 20160815
  Serious: Yes (Other)
  Sender: FDA-Public Use
  Company Number: BR-AMGEN-BRASP2016045304

PATIENT
  Age: 59 Year
  Sex: Female
  Weight: 62 kg

DRUGS (14)
  1. PREDSIM [Concomitant]
     Active Substance: PREDNISOLONE
     Dosage: UNK
  2. VITAMIN D                          /00107901/ [Concomitant]
     Active Substance: ERGOCALCIFEROL
     Dosage: UNK (1 PILL PER DAY)
  3. MABTHERA [Suspect]
     Active Substance: RITUXIMAB
     Indication: RHEUMATOID ARTHRITIS
     Dosage: UNK
     Route: 065
  4. RANITIDINE                         /00550802/ [Concomitant]
     Dosage: 150 MG, (PILLS PER DAY)
  5. RISEDROSS [Concomitant]
     Active Substance: RISEDRONATE SODIUM
     Dosage: 35 MG, UNK
  6. LABIRIN [Concomitant]
     Active Substance: BETAHISTINE
     Dosage: 16 MG, (1 PILL PER DAY)
  7. FOLIC ACID. [Concomitant]
     Active Substance: FOLIC ACID
     Dosage: 5 MG, (1 PILL EVERY 8 DAYS)
  8. METHOTREXATE [Concomitant]
     Active Substance: METHOTREXATE
     Dosage: UNK (1 PILL EVERY 8 DAYS)
  9. PRESSAT [Concomitant]
     Active Substance: AMLODIPINE BESYLATE
     Dosage: 2.5 MG, UNK
  10. VITAMIN E                          /00110501/ [Concomitant]
     Active Substance: TOCOPHEROL
     Dosage: UNK (1 PILL PER DAY)
  11. NEUPOGEN [Suspect]
     Active Substance: FILGRASTIM
     Indication: PRODUCT USED FOR UNKNOWN INDICATION
     Dosage: UNK
     Route: 065
  12. SIMVASTATIN. [Concomitant]
     Active Substance: SIMVASTATIN
     Dosage: 20 MG, (1 PILL AT NIGHT)
  13. LOSARTAN + HIDROCLOROTIAZIDA       /01284801/ [Concomitant]
     Dosage: 50MG +12.5 MG, (1 PILL AT NIGHT OR 1 PILL IN THE MORNING AND AT NIGHT)
  14. PARACETAMOL [Concomitant]
     Active Substance: ACETAMINOPHEN
     Dosage: 1 G, (1 PILL BEFORE TAKING MABTHERA)

REACTIONS (8)
  - Confusional state [Unknown]
  - Platelet count abnormal [Unknown]
  - Drug hypersensitivity [Not Recovered/Not Resolved]
  - Mobility decreased [Unknown]
  - Pain in extremity [Unknown]
  - Osteoporosis [Unknown]
  - Labyrinthitis [Not Recovered/Not Resolved]
  - Malaise [Unknown]

NARRATIVE: CASE EVENT DATE: 2015
